FAERS Safety Report 4960940-1 (Version None)
Quarter: 2006Q1

REPORT INFORMATION
  Report Type: 
  Country: None (occurrence: None)
  Receive Date: 20060328
  Receipt Date: 20060314
  Transmission Date: 20060701
  Serious: Yes (Hospitalization)
  Sender: FDA-Public Use
  Company Number: 2006034746

PATIENT
  Age: 93 Year
  Sex: Male
  Weight: 69.5 kg

DRUGS (9)
  1. NEURONTIN [Suspect]
     Indication: POLYNEUROPATHY
     Dosage: 1200 MG (400 MG, 3 IN 1 D), ORAL
     Route: 048
  2. TOREM (TORASEMIDE) [Suspect]
     Indication: CARDIAC FAILURE CONGESTIVE
     Dosage: 1 IN 1 D, ORAL
     Route: 048
     Dates: end: 20060123
  3. TOREM (TORASEMIDE) [Suspect]
     Indication: HYPERTENSIVE HEART DISEASE
     Dosage: 1 IN 1 D, ORAL
     Route: 048
     Dates: end: 20060123
  4. MODURETIC 5-50 [Suspect]
     Indication: CARDIAC FAILURE CONGESTIVE
     Dosage: 1 IN 1 D, ORAL
     Route: 048
     Dates: end: 20060123
  5. MODURETIC 5-50 [Suspect]
     Indication: HYPERTENSIVE HEART DISEASE
     Dosage: 1 IN 1 D, ORAL
     Route: 048
     Dates: end: 20060123
  6. ALFUZOSIN (ALFUZOSIN) [Suspect]
     Indication: BENIGN PROSTATIC HYPERPLASIA
     Dosage: 10 MG (10 MG, 1 IN 1 D), ORAL
     Route: 048
  7. ASPIRIN [Concomitant]
  8. NITRODERM [Concomitant]
  9. ATORVASTATIN CALCIUM [Concomitant]

REACTIONS (17)
  - AREFLEXIA [None]
  - ATRIOVENTRICULAR BLOCK FIRST DEGREE [None]
  - BALANCE DISORDER [None]
  - CONFUSIONAL STATE [None]
  - COORDINATION ABNORMAL [None]
  - DYSARTHRIA [None]
  - FALL [None]
  - GAIT DISTURBANCE [None]
  - HAEMODYNAMIC INSTABILITY [None]
  - HYPERREFLEXIA [None]
  - HYPOAESTHESIA [None]
  - LOSS OF CONSCIOUSNESS [None]
  - MEDICATION ERROR [None]
  - ORTHOSTATIC HYPOTENSION [None]
  - PRODUCTIVE COUGH [None]
  - RENAL FAILURE CHRONIC [None]
  - SENSORY DISTURBANCE [None]
